FAERS Safety Report 16313766 (Version 2)
Quarter: 2019Q3

REPORT INFORMATION
  Report Type: Spontaneous
  Country: US (occurrence: US)
  Receive Date: 20190515
  Receipt Date: 20190816
  Transmission Date: 20191004
  Serious: No
  Sender: FDA-Public Use
  Company Number: US-PFIZER INC-2019205820

PATIENT
  Age: 80 Year

DRUGS (1)
  1. FELDENE [Suspect]
     Active Substance: PIROXICAM
     Dosage: UNK

REACTIONS (4)
  - Rash [Unknown]
  - Nausea [Unknown]
  - Swelling [Unknown]
  - Drug hypersensitivity [Unknown]
